FAERS Safety Report 17503002 (Version 7)
Quarter: 2020Q3

REPORT INFORMATION
  Report Type: Spontaneous
  Country: JP (occurrence: JP)
  Receive Date: 20200305
  Receipt Date: 20200701
  Transmission Date: 20201102
  Serious: Yes (Hospitalization)
  Sender: FDA-Public Use
  Company Number: JP-ELI_LILLY_AND_COMPANY-JP202002011286

PATIENT
  Age: 59 Year
  Sex: Female
  Weight: 58.3 kg

DRUGS (2)
  1. FASLODEX [Suspect]
     Active Substance: FULVESTRANT
     Indication: METASTASES TO BONE
     Dosage: 250 MG, UNKNOWN
     Route: 030
     Dates: start: 20191126, end: 20200121
  2. VERZENIO [Suspect]
     Active Substance: ABEMACICLIB
     Indication: METASTASES TO BONE
     Dosage: 150 MG, BID
     Route: 048
     Dates: start: 20191126, end: 20200121

REACTIONS (1)
  - Drug-induced liver injury [Recovered/Resolved]

NARRATIVE: CASE EVENT DATE: 20200212
